FAERS Safety Report 9397448 (Version 1)
Quarter: 2013Q3

REPORT INFORMATION
  Report Type: Spontaneous
  Country: US (occurrence: None)
  Receive Date: 20130711
  Receipt Date: 20130711
  Transmission Date: 20140515
  Serious: No
  Sender: FDA-Public Use
  Company Number: None

PATIENT
  Age: 18 Year
  Sex: Female

DRUGS (1)
  1. LOESTRIN FE 1/20 [Suspect]
     Indication: CONTRACEPTION

REACTIONS (1)
  - Metrorrhagia [None]
